FAERS Safety Report 18533472 (Version 1)
Quarter: 2020Q4

REPORT INFORMATION
  Report Type: Spontaneous
  Country: US (occurrence: US)
  Receive Date: 20201120
  Receipt Date: 20201120
  Transmission Date: 20210114
  Serious: Yes (Hospitalization)
  Sender: FDA-Public Use
  Company Number: None

PATIENT
  Age: 76 Year
  Sex: Male

DRUGS (26)
  1. HYOSCYAMLNE [Concomitant]
  2. LEVOTHYROXLN [Concomitant]
  3. POT CHLORIDE ER [Concomitant]
  4. ACETAMIN [Concomitant]
     Active Substance: ACETAMINOPHEN
  5. FUROSEMIDE. [Concomitant]
     Active Substance: FUROSEMIDE
  6. PREDNISONE, [Concomitant]
  7. VITAMIN D [Concomitant]
     Active Substance: VITAMIN D NOS
  8. BISCAODYL [Concomitant]
  9. BUPROPION SR [Concomitant]
     Active Substance: BUPROPION HYDROCHLORIDE
  10. IPRATROPIUM/SOL ALBUTER [Concomitant]
  11. METOPROL SUC ER [Concomitant]
  12. ALPRAZOLAM. [Concomitant]
     Active Substance: ALPRAZOLAM
  13. MAGNESIUM - OX [Concomitant]
  14. SILDENAFIL. [Concomitant]
     Active Substance: SILDENAFIL
  15. TEMAZEPAM. [Concomitant]
     Active Substance: TEMAZEPAM
  16. BUDESONIDE. [Concomitant]
     Active Substance: BUDESONIDE
  17. DOXYCYCL HYC [Concomitant]
  18. HYDROCHLOROT [Concomitant]
     Active Substance: HYDROCHLOROTHIAZIDE
  19. MORPHINE SUL [Concomitant]
     Active Substance: MORPHINE SULFATE
  20. SERTRALINE [Concomitant]
     Active Substance: SERTRALINE HYDROCHLORIDE
  21. ESBRIET [Suspect]
     Active Substance: PIRFENIDONE
     Indication: IDIOPATHIC PULMONARY FIBROSIS
     Dosage: ?          OTHER DOSE:3 CAPS;?
     Route: 048
     Dates: start: 20190411
  22. AMLODIPINE [Concomitant]
     Active Substance: AMLODIPINE BESYLATE
  23. HALOPERIDOL. [Concomitant]
     Active Substance: HALOPERIDOL
  24. LOPERAMIDE [Concomitant]
     Active Substance: LOPERAMIDE
  25. PROCHLORPER [Concomitant]
  26. VLBRYD [Concomitant]

REACTIONS (1)
  - Respiratory disorder [None]

NARRATIVE: CASE EVENT DATE: 20201114
